FAERS Safety Report 14456962 (Version 1)
Quarter: 2018Q1

REPORT INFORMATION
  Report Type: Spontaneous
  Country: US (occurrence: US)
  Receive Date: 20180127
  Receipt Date: 20180127
  Transmission Date: 20180509
  Serious: No
  Sender: FDA-Public Use
  Company Number: None

PATIENT
  Age: 45 Year
  Sex: Female

DRUGS (1)
  1. HUMIRA [Suspect]
     Active Substance: ADALIMUMAB
     Indication: COLITIS ULCERATIVE
     Route: 058
     Dates: start: 20171115

REACTIONS (5)
  - Joint swelling [None]
  - Peripheral swelling [None]
  - Arthralgia [None]
  - Heart rate increased [None]
  - Pain in extremity [None]

NARRATIVE: CASE EVENT DATE: 20171115
